FAERS Safety Report 6523193-9 (Version None)
Quarter: 2009Q4

REPORT INFORMATION
  Report Type: 
  Country: None (occurrence: None)
  Receive Date: 20091222
  Receipt Date: 20091203
  Transmission Date: 20100525
  Serious: Yes (Death)
  Sender: FDA-Public Use
  Company Number: 2009AP005082

PATIENT
  Age: 75 Year
  Sex: Female

DRUGS (9)
  1. ALENDRONATE SODIUM [Suspect]
     Dosage: FORM, ROUTE AND FREQUENCY; TAB;PO
     Route: 048
  2. METFORMIN HYDROCHLORIDE [Suspect]
     Dosage: FORM, ROUTE AND FREQUENCY 1000 MG; TAB; PO
     Route: 048
  3. PREDNISONE [Suspect]
     Dosage: DOSE, FORM, ROUTE AND FREQUENCY; 5 MG
  4. COMBIVENT [Suspect]
     Dosage: DOSE, FORM, ROUTE AND FREQUENCY
  5. LASIX [Suspect]
     Dosage: DOSE, FORM, ROUTE AND FREQUENCY
  6. LIPITOR [Suspect]
     Dosage: DOSE, FORM, ROUTE AND FREQUENCY
  7. NITRAZADON (NITRAZADON) [Suspect]
     Dosage: DOSE, FORM, ROUTE AND FREQUENCY
  8. PLAQUENIL [Suspect]
     Dosage: DOSE, FORM, ROUTE AND FREQUENCY, 300 MG
  9. PRILOSEC [Suspect]
     Dosage: DOSE, FORM, ROUTE AND FREQUENCY

REACTIONS (1)
  - CHEST DISCOMFORT [None]
